FAERS Safety Report 9450973 (Version 1)
Quarter: 2013Q3

REPORT INFORMATION
  Report Type: Spontaneous
  Country: JP (occurrence: JP)
  Receive Date: 20130809
  Receipt Date: 20130809
  Transmission Date: 20140515
  Serious: Yes (Hospitalization)
  Sender: FDA-Public Use
  Company Number: JP-B.I. PHARMACEUTICALS,INC./RIDGEFIELD-2013-BI-22096NB

PATIENT
  Age: 70 Year
  Sex: Female

DRUGS (5)
  1. PRAZAXA [Suspect]
     Indication: CEREBROVASCULAR ACCIDENT PROPHYLAXIS
     Dosage: 220 MG
     Route: 048
     Dates: start: 20120910, end: 20130626
  2. CRESTOR [Concomitant]
     Indication: HYPERLIPIDAEMIA
     Dosage: 2.5 MG
     Route: 048
     Dates: start: 20101022
  3. CEROCRAL [Concomitant]
     Indication: DIZZINESS
     Dosage: 40 MG
     Route: 048
     Dates: start: 20101022, end: 20130626
  4. OLMETEC [Concomitant]
     Indication: HYPERTENSION
     Dosage: 10 MG
     Route: 048
     Dates: start: 20110214
  5. JANUVIA [Concomitant]
     Indication: DIABETES MELLITUS
     Dosage: 50 MG
     Route: 048
     Dates: start: 20111128

REACTIONS (4)
  - Cerebral haemorrhage [Recovered/Resolved]
  - Somnolence [Unknown]
  - Vomiting [Unknown]
  - Nausea [Unknown]
